FAERS Safety Report 6921070-2 (Version None)
Quarter: 2010Q3

REPORT INFORMATION
  Report Type: 
  Country: None (occurrence: None)
  Receive Date: 20100812
  Receipt Date: 20100802
  Transmission Date: 20110219
  Serious: Yes (Hospitalization, Other)
  Sender: FDA-Public Use
  Company Number: US-ROCHE-718724

PATIENT
  Age: 66 Year
  Sex: Male
  Weight: 77.8 kg

DRUGS (9)
  1. BEVACIZUMAB [Suspect]
     Dosage: DOSE LEVEL: 15 MG/KG, FREQUENCY QDAY 1 OF 21 DAY CYCLE.
     Route: 042
     Dates: start: 20100729
  2. DOCETAXEL [Suspect]
     Dosage: DOSE LEVEL: 75 MG/M2, FREQUENCY: Q DAY1 OF 21 DAY CYCLE.
     Route: 042
     Dates: start: 20100729
  3. GEMCITABINE [Suspect]
     Dosage: DOSE LEVEL: 900 MG/M2, FREQUENCY: DAY 1,8 OF 21 DAY CYCLE.
     Route: 042
     Dates: start: 20100729
  4. BACLOFEN [Concomitant]
     Indication: HICCUPS
     Dosage: FREQUENCY: 10 MG EVERY 8 HRS, PRN.
  5. DOCUSATE SODIUM/SENNOSIDES [Concomitant]
     Dosage: DOSE 8.6/ 50 MG, FRQ: 2 TABLET BID.
  6. OXYCODONE HCL [Concomitant]
     Indication: PAIN
     Dosage: DOSE: 1-2 TAB, EVERY 4-6 HR PRN
  7. OXYCODONE HCL [Concomitant]
  8. LISINOPRIL [Concomitant]
  9. DEXAMETHASONE [Concomitant]
     Dosage: START DATE: ADY 2 OF CHEMO X 3 DAY.

REACTIONS (2)
  - LUNG INFECTION [None]
  - PNEUMONIA ASPIRATION [None]
